FAERS Safety Report 4964619-1 (Version None)
Quarter: 2006Q1

REPORT INFORMATION
  Report Type: 
  Country: None (occurrence: None)
  Receive Date: 20060331
  Receipt Date: 20060321
  Transmission Date: 20060701
  Serious: Yes (Hospitalization)
  Sender: FDA-Public Use
  Company Number: 2006-0046-EUR

PATIENT
  Age: 41 Year
  Sex: Female

DRUGS (2)
  1. MEPIVACAINE HYDROCHLORIDE [Suspect]
     Dosage: 1 DOSAGE FORMS, 1 ONCE
     Dates: start: 20060313, end: 20060313
  2. 2% XYLOCAINE DENTAL WITH EPINEPHRINE 1:100,000(XYLOCAINE-EPINEPHRINE) [Suspect]
     Dosage: 1 DOSAGE FORMS, 1 ONCE)
     Dates: start: 20060313, end: 20060313

REACTIONS (4)
  - DISORIENTATION [None]
  - DIZZINESS [None]
  - HEADACHE [None]
  - HYPERSENSITIVITY [None]
